FAERS Safety Report 6044861-1 (Version None)
Quarter: 2009Q1

REPORT INFORMATION
  Report Type: 
  Country: None (occurrence: None)
  Receive Date: 20090116
  Receipt Date: 20090116
  Transmission Date: 20090719
  Serious: Yes (Other)
  Sender: FDA-Public Use
  Company Number: None

PATIENT
  Sex: Female
  Weight: 35 kg

DRUGS (3)
  1. LAMOTRIGINE [Suspect]
     Indication: EPILEPSY
     Dosage: 1 TABLET BID P.O.
     Route: 048
     Dates: start: 20080801, end: 20081001
  2. TOPAMAX [Concomitant]
  3. KLONOPIN [Concomitant]

REACTIONS (8)
  - ABNORMAL BEHAVIOUR [None]
  - CONVULSION [None]
  - GASTROINTESTINAL DISORDER [None]
  - PERSONALITY CHANGE [None]
  - SCHOOL REFUSAL [None]
  - SEDATION [None]
  - SOMNOLENCE [None]
  - THERAPEUTIC RESPONSE UNEXPECTED WITH DRUG SUBSTITUTION [None]
